FAERS Safety Report 10741065 (Version 4)
Quarter: 2015Q1

REPORT INFORMATION
  Report Type: Report from Study
  Country: ES (occurrence: ES)
  Receive Date: 20150127
  Receipt Date: 20150226
  Transmission Date: 20150721
  Serious: Yes (Hospitalization)
  Sender: FDA-Public Use
  Company Number: ES-009507513-1411ESP010764

PATIENT
  Age: 63 Year
  Sex: Male
  Weight: 102.8 kg

DRUGS (9)
  1. NOLOTIL [Concomitant]
     Active Substance: METAMIZOLE
     Indication: EYE PAIN
     Dosage: TOTAL DAILY DOSE 3 AMPULES
     Route: 048
     Dates: start: 20140911, end: 20141118
  2. DUODART [Concomitant]
     Active Substance: DUTASTERIDE\TAMSULOSIN
     Indication: BENIGN PROSTATIC HYPERPLASIA
     Dosage: 1 TABLET, QD
     Route: 048
     Dates: start: 20120202, end: 20141118
  3. DEXAMETHASONE. [Concomitant]
     Active Substance: DEXAMETHASONE
     Indication: DECREASED APPETITE
     Dosage: 1 MG, QD
     Route: 048
     Dates: start: 20140820
  4. DEXAMETHASONE. [Concomitant]
     Active Substance: DEXAMETHASONE
     Indication: PROPHYLAXIS
  5. PEMBROLIZUMAB. [Suspect]
     Active Substance: PEMBROLIZUMAB
     Indication: NON-SMALL CELL LUNG CANCER
     Dosage: 10 MG/KG, Q3W
     Route: 042
     Dates: start: 20140410, end: 20141006
  6. OMEPRAZOLE. [Concomitant]
     Active Substance: OMEPRAZOLE
     Indication: PROPHYLAXIS
     Dosage: 20 MG, QD,
     Route: 048
     Dates: start: 20140728
  7. PEMBROLIZUMAB. [Suspect]
     Active Substance: PEMBROLIZUMAB
     Dosage: 10 MG/KG, Q3W
     Route: 042
     Dates: start: 20141030, end: 20141030
  8. ACETAMINOPHEN. [Concomitant]
     Active Substance: ACETAMINOPHEN
     Indication: MUSCULOSKELETAL PAIN
  9. ACETAMINOPHEN. [Concomitant]
     Active Substance: ACETAMINOPHEN
     Indication: CHEST PAIN
     Dosage: 1 G, TID
     Route: 048
     Dates: start: 201405, end: 20141118

REACTIONS (1)
  - Pneumonitis chemical [Recovered/Resolved with Sequelae]

NARRATIVE: CASE EVENT DATE: 20141104
